FAERS Safety Report 16248292 (Version 8)
Quarter: 2020Q3

REPORT INFORMATION
  Report Type: Report from Study
  Country: JP (occurrence: JP)
  Receive Date: 20190429
  Receipt Date: 20200902
  Transmission Date: 20201102
  Serious: Yes (Hospitalization, Other)
  Sender: FDA-Public Use
  Company Number: JP-BRISTOL-MYERS SQUIBB COMPANY-BMS-2018-082660

PATIENT
  Age: 66 Year
  Sex: Male
  Weight: 60 kg

DRUGS (47)
  1. PLACEBO [Suspect]
     Active Substance: UNSPECIFIED INGREDIENT
     Dosage: 360 MILLIGRAM
     Route: 041
     Dates: start: 20200129
  2. BEVACIZUMAB. [Suspect]
     Active Substance: BEVACIZUMAB
     Dosage: 897 MILLIGRAM, Q3WK
     Route: 041
     Dates: start: 20200129
  3. LOXOPROFEN NA [Concomitant]
     Active Substance: LOXOPROFEN SODIUM
     Dosage: 180 MILLIGRAM, Q8H
     Route: 048
     Dates: start: 20190306
  4. ANTEBATE [Concomitant]
     Active Substance: BETAMETHASONE DIPROPIONATE
     Indication: ECZEMA
     Dosage: APPROPRIATE AMOUNT, PRN
     Route: 061
     Dates: start: 20190322
  5. ANTEBATE [Concomitant]
     Active Substance: BETAMETHASONE DIPROPIONATE
     Indication: DRY SKIN
  6. NIFEDIPINE. [Concomitant]
     Active Substance: NIFEDIPINE
     Indication: HYPERTENSION
     Dosage: 20 MG, EVERYDAY, MORNING
     Route: 048
     Dates: start: 2007
  7. ADOAIR [Concomitant]
     Active Substance: FLUTICASONE PROPIONATE\SALMETEROL XINAFOATE
     Indication: ASTHMA
     Dosage: 1 DOSAGE FORM, Q12H
     Route: 055
     Dates: start: 2007
  8. LOXOPROFEN NA [Concomitant]
     Active Substance: LOXOPROFEN SODIUM
     Dosage: 60 MILLIGRAM
     Route: 048
     Dates: start: 20200103
  9. RELVAR ELLIPTA [FLUTICASONE FUROATE;VILANTEROL TRIFENATATE] [Concomitant]
     Active Substance: FLUTICASONE FUROATE\VILANTEROL TRIFENATATE
     Indication: ASTHMA
     Dosage: 1 DOSAGE FORM, QD
     Route: 055
     Dates: start: 20181112
  10. DERMOVATE [Concomitant]
     Active Substance: CLOBETASOL
     Indication: DRY SKIN
     Dosage: APPROPRIATE AMOUNT, PRN
     Route: 061
     Dates: start: 20200205
  11. ASTAT [LANOCONAZOLE] [Concomitant]
     Indication: ECZEMA
     Dosage: UNK, Q12H
     Route: 061
     Dates: start: 20190405
  12. E KEPPRA [Concomitant]
     Active Substance: LEVETIRACETAM
     Indication: EPILEPSY
     Dosage: 1000 MILLIGRAM, Q12H, MORNING AND EVENING
     Route: 048
     Dates: start: 20181106
  13. CARBOPLATIN. [Suspect]
     Active Substance: CARBOPLATIN
     Indication: NON-SMALL CELL LUNG CANCER
     Dosage: 699.6 MILLIGRAM
     Route: 065
     Dates: start: 20180824
  14. OLMESARTAN [Concomitant]
     Active Substance: OLMESARTAN
     Indication: HYPERTENSION
     Dosage: 20 MG, EVERYDAY, MORNING
     Route: 048
     Dates: start: 20181014
  15. AMBROXOL HCL [Concomitant]
     Active Substance: AMBROXOL HYDROCHLORIDE
     Indication: NON-SMALL CELL LUNG CANCER
     Dosage: 20 MG, EVERYDAY, MORNING
     Route: 048
     Dates: start: 201802
  16. PREDONINE [Concomitant]
     Active Substance: PREDNISOLONE
     Indication: INTERSTITIAL LUNG DISEASE
     Dosage: 5 MILLIGRAM, QD, EVENING
     Route: 048
     Dates: start: 20190607
  17. THYRADIN S [Concomitant]
     Active Substance: LEVOTHYROXINE SODIUM
     Indication: THYROID DISORDER
     Dosage: 50 MICROGRAM, QD, MORNING
     Route: 048
     Dates: start: 20190417
  18. DEXALTIN [Concomitant]
     Active Substance: DEXAMETHASONE
     Indication: PRODUCT USED FOR UNKNOWN INDICATION
     Dosage: UNK
     Route: 061
     Dates: start: 20181011
  19. LOXOPROFEN NA [Concomitant]
     Active Substance: LOXOPROFEN SODIUM
     Indication: ARTHRALGIA
     Dosage: UNK
     Route: 061
     Dates: start: 20180827
  20. LUNESTA [Concomitant]
     Active Substance: ESZOPICLONE
     Indication: INSOMNIA
     Dosage: 1 MILLIGRAM
     Route: 048
     Dates: start: 20190104
  21. PLACEBO [Suspect]
     Active Substance: UNSPECIFIED INGREDIENT
     Indication: NON-SMALL CELL LUNG CANCER
     Dosage: 360 MILLIGRAM
     Route: 041
     Dates: start: 20180824, end: 20190327
  22. BLINDED NIVOLUMAB [Suspect]
     Active Substance: NIVOLUMAB
     Dosage: 360 MILLIGRAM
     Route: 041
     Dates: start: 20200129
  23. PACLITAXEL. [Suspect]
     Active Substance: PACLITAXEL
     Indication: NON-SMALL CELL LUNG CANCER
     Dosage: 342.4 MILLIGRAM
     Route: 065
     Dates: start: 20180824
  24. PROCTOSEDYL [CINCHOCAINE HYDROCHLORIDE;ESCULOSIDE;HYDROCORTISONE;NEOMY [Concomitant]
     Indication: PROCTALGIA
     Dosage: APPROPRIATE AMOUNT, PRN
     Route: 061
     Dates: start: 20180905
  25. SPIRIVA [Concomitant]
     Active Substance: TIOTROPIUM BROMIDE MONOHYDRATE
     Indication: ASTHMA
     Dosage: 5 MICROGRAM, QD
     Route: 049
     Dates: start: 20190426
  26. BLINDED NIVOLUMAB [Suspect]
     Active Substance: NIVOLUMAB
     Indication: NON-SMALL CELL LUNG CANCER
     Dosage: 360 MILLIGRAM
     Route: 041
     Dates: start: 20180824, end: 20190327
  27. BEVACIZUMAB. [Suspect]
     Active Substance: BEVACIZUMAB
     Indication: NON-SMALL CELL LUNG CANCER
     Dosage: 897 MILLIGRAM
     Route: 041
     Dates: start: 20180824, end: 20190327
  28. LIDOMEX [Concomitant]
     Active Substance: PREDNISOLONE VALERATE ACETATE
     Indication: DERMATITIS
  29. BESOFTEN [Concomitant]
     Active Substance: PENTOSAN POLYSULFATE SODIUM
     Indication: PRODUCT USED FOR UNKNOWN INDICATION
     Dosage: UNK
     Route: 003
     Dates: start: 20180108
  30. DEXALTIN [Concomitant]
     Active Substance: DEXAMETHASONE
     Indication: ANGULAR CHEILITIS
  31. LOXOPROFEN NA [Concomitant]
     Active Substance: LOXOPROFEN SODIUM
     Dosage: UNK, PRN
     Route: 048
     Dates: start: 20180901
  32. HIRUDOID [Concomitant]
     Active Substance: GLYCOSAMINOGLYCANS
     Indication: DRY SKIN
     Dosage: UNK, Q12H
     Route: 061
     Dates: start: 20181019
  33. HIRUDOID [Concomitant]
     Active Substance: GLYCOSAMINOGLYCANS
     Dosage: APPROPRIATE AMOUNT, PRN
     Route: 061
     Dates: start: 20190322
  34. SAMTIREL [Concomitant]
     Active Substance: ATOVAQUONE
     Indication: ANTIFUNGAL PROPHYLAXIS
     Dosage: 2 DOSAGE FORM, QD, MORNING
     Route: 048
     Dates: start: 20190508
  35. ZINC. [Concomitant]
     Active Substance: ZINC
     Indication: TASTE DISORDER
     Dosage: 50 MILLIGRAM, QD, AFTERNOON
     Route: 048
     Dates: start: 20190726
  36. AMBROXOL HYDROCHLORIDE [Concomitant]
     Active Substance: AMBROXOL HYDROCHLORIDE
     Indication: AIRWAY SECRETION CLEARANCE THERAPY
     Dosage: 45 MILLIGRAM, QD, MORNING
     Route: 048
     Dates: start: 20180823
  37. DERMOVATE [Concomitant]
     Active Substance: CLOBETASOL
     Indication: ECZEMA
     Dosage: APPROPRIATE AMOUNT, PRN
     Route: 061
     Dates: start: 20180810
  38. DRENISON [FLUDROXYCORTIDE] [Concomitant]
     Indication: ECZEMA
     Dosage: UNK
     Route: 003
     Dates: start: 20180827
  39. TRAMAL [Concomitant]
     Active Substance: TRAMADOL
     Indication: ARTHRALGIA
     Dosage: 50 MILLIGRAM, BID
     Route: 048
     Dates: start: 20190327
  40. SPIRIVA [Concomitant]
     Active Substance: TIOTROPIUM BROMIDE MONOHYDRATE
     Dosage: APPROPRIATE AMOUNT, PRN
     Route: 049
     Dates: start: 20190427
  41. AMBROXOL HYDROCHLORIDE [Concomitant]
     Active Substance: AMBROXOL HYDROCHLORIDE
     Indication: HYPERTENSION
     Dosage: UNK
     Route: 048
     Dates: start: 201802
  42. LIDOMEX [Concomitant]
     Active Substance: PREDNISOLONE VALERATE ACETATE
     Indication: DERMATITIS
     Dosage: APPROPRIATE AMOUNT, PRN
     Route: 061
     Dates: start: 20180810
  43. LOXOPROFEN PAP [Concomitant]
     Indication: ARTHRALGIA
     Dosage: APPROPRIATE AMOUNT, PRN
     Route: 061
     Dates: start: 20180827
  44. BESOFTEN [Concomitant]
     Active Substance: PENTOSAN POLYSULFATE SODIUM
     Indication: PROPHYLAXIS
  45. LOCOID [Concomitant]
     Active Substance: HYDROCORTISONE BUTYRATE
     Indication: ECZEMA
     Dosage: UNK UNK, Q12H
     Route: 003
     Dates: start: 20190405
  46. LANSOPRAZOLE. [Concomitant]
     Active Substance: LANSOPRAZOLE
     Indication: GASTRITIS PROPHYLAXIS
     Dosage: 15 MILLIGRAM, QD, EVENING
     Route: 048
     Dates: start: 20190417
  47. CELECOX [Concomitant]
     Active Substance: CELECOXIB
     Indication: ARTHRITIS
     Dosage: 200 MILLIGRAM, Q12H, MORNING AND EVENING
     Route: 048
     Dates: start: 20200214

REACTIONS (6)
  - Decreased appetite [Recovered/Resolved]
  - Febrile neutropenia [Recovering/Resolving]
  - Hepatic function abnormal [Recovering/Resolving]
  - Seizure [Recovered/Resolved]
  - Erythema multiforme [Recovering/Resolving]
  - Pyrexia [Recovered/Resolved]

NARRATIVE: CASE EVENT DATE: 20180831
